FAERS Safety Report 9210330 (Version 1)
Quarter: 2013Q2

REPORT INFORMATION
  Report Type: Spontaneous
  Country: JP (occurrence: JP)
  Receive Date: 20130404
  Receipt Date: 20130404
  Transmission Date: 20140414
  Serious: Yes (Other)
  Sender: FDA-Public Use
  Company Number: JP-ELI_LILLY_AND_COMPANY-JP201207000400

PATIENT
  Age: 80 Year
  Sex: Female

DRUGS (2)
  1. FORTEO [Suspect]
     Indication: OSTEOPOROSIS
     Dosage: UNK
     Route: 058
     Dates: start: 20120621
  2. FORTEO [Suspect]
     Route: 058

REACTIONS (4)
  - Thyroid disorder [Unknown]
  - Injection site bruising [Recovered/Resolved]
  - Blood pressure increased [Not Recovered/Not Resolved]
  - Decreased appetite [Unknown]
